FAERS Safety Report 8117918-9 (Version None)
Quarter: 2012Q1

REPORT INFORMATION
  Report Type: 
  Country: None (occurrence: None)
  Receive Date: 20120207
  Receipt Date: 20120127
  Transmission Date: 20120608
  Serious: Yes (Hospitalization)
  Sender: FDA-Public Use
  Company Number: JP-EISAI INC-E7389-01864-SPO-JP

PATIENT
  Age: 59 Year
  Sex: Female
  Weight: 51 kg

DRUGS (5)
  1. FEMARA [Concomitant]
     Route: 048
  2. LEVOTHYROXINE SODIUM [Concomitant]
     Route: 048
  3. HALAVEN [Suspect]
     Indication: BREAST CANCER RECURRENT
     Route: 041
     Dates: start: 20111207, end: 20111214
  4. HALAVEN [Suspect]
     Route: 041
     Dates: start: 20120111
  5. FUROSEMIDE [Concomitant]
     Route: 048

REACTIONS (5)
  - PALPITATIONS [None]
  - TACHYCARDIA [None]
  - PRURITUS [None]
  - HOT FLUSH [None]
  - FLUSHING [None]
